FAERS Safety Report 13587302 (Version 1)
Quarter: 2017Q2

REPORT INFORMATION
  Report Type: Spontaneous
  Country: FR (occurrence: FR)
  Receive Date: 20170526
  Receipt Date: 20170526
  Transmission Date: 20170830
  Serious: Yes (Hospitalization)
  Sender: FDA-Public Use
  Company Number: PHHY2017FR075514

PATIENT
  Age: 43 Year
  Sex: Male

DRUGS (5)
  1. NEURONTIN [Suspect]
     Active Substance: GABAPENTIN
     Indication: EPILEPSY
     Dosage: 800 MG, BID (1 IN MORNING, 1 IN NIGHT)
     Route: 065
     Dates: end: 20160524
  2. TEGRETOL [Suspect]
     Active Substance: CARBAMAZEPINE
     Indication: EPILEPSY
     Dosage: 400 MG, BID (1 IN MORNING, 1 IN NIGHT)
     Route: 048
     Dates: start: 201604, end: 20160524
  3. IMOVANE [Concomitant]
     Active Substance: ZOPICLONE
     Indication: SLEEP DISORDER THERAPY
     Dosage: 7.5 MG, QD (1/2 EVERY EVENING)
     Route: 048
  4. TEGRETOL [Suspect]
     Active Substance: CARBAMAZEPINE
     Dosage: 600 MG, QD (200MG ON THE MORNING AND 400MG ON THE EVENING )
     Route: 048
     Dates: start: 20160524
  5. NEURONTIN [Suspect]
     Active Substance: GABAPENTIN
     Dosage: 2000 MG, QD (800 MG IN THE MORNING, 400 MG AT LUNCHTIME AND 800 MG IN THE EVENING)
     Route: 065
     Dates: start: 20160524

REACTIONS (4)
  - Headache [Recovered/Resolved]
  - Memory impairment [Recovered/Resolved]
  - Vision blurred [Recovered/Resolved]
  - Paraesthesia [Recovered/Resolved]

NARRATIVE: CASE EVENT DATE: 20160524
